FAERS Safety Report 12824685 (Version 4)
Quarter: 2016Q4

REPORT INFORMATION
  Report Type: Spontaneous
  Country: IT (occurrence: IT)
  Receive Date: 20161007
  Receipt Date: 20161020
  Transmission Date: 20170207
  Serious: Yes (Hospitalization)
  Sender: FDA-Public Use
  Company Number: PHHY2016IT136713

PATIENT
  Age: 45 Year
  Sex: Male

DRUGS (5)
  1. CICLOSPORIN [Interacting]
     Active Substance: CYCLOSPORINE
     Indication: IMMUNOSUPPRESSANT DRUG THERAPY
  2. CICLOSPORIN [Suspect]
     Active Substance: CYCLOSPORINE
     Indication: RENAL TRANSPLANT
     Dosage: 125 MG, QD
     Route: 065
     Dates: start: 1989
  3. VINFLUNINE [Interacting]
     Active Substance: VINFLUNINE
     Indication: TRANSITIONAL CELL CARCINOMA
     Dosage: 280 MG/M2, UNK
     Route: 065
     Dates: start: 20150227
  4. VINFLUNINE [Interacting]
     Active Substance: VINFLUNINE
     Dosage: 220 MG/M2, UNK
     Route: 065
  5. VINFLUNINE [Interacting]
     Active Substance: VINFLUNINE
     Dosage: 200 MG/M2, UNK
     Route: 065

REACTIONS (7)
  - Drug interaction [Unknown]
  - Nausea [Unknown]
  - Transaminases increased [Unknown]
  - Neutropenia [Unknown]
  - Thrombocytopenia [Unknown]
  - Decreased appetite [Unknown]
  - Stomatitis [Unknown]
